FAERS Safety Report 13035579 (Version 1)
Quarter: 2016Q4

REPORT INFORMATION
  Report Type: Spontaneous
  Country: US (occurrence: US)
  Receive Date: 20161216
  Receipt Date: 20161216
  Transmission Date: 20170207
  Serious: Yes (Death)
  Sender: FDA-Public Use
  Company Number: US-CELGENEUS-USA-2016120327

PATIENT
  Age: 85 Year
  Sex: Male

DRUGS (2)
  1. THALOMID [Suspect]
     Active Substance: THALIDOMIDE
     Indication: PLASMA CELL MYELOMA
     Dosage: 50 MG
     Route: 048
     Dates: start: 201601
  2. THALOMID [Suspect]
     Active Substance: THALIDOMIDE
     Dosage: 100 MG
     Route: 048
     Dates: start: 201605

REACTIONS (1)
  - Ammonia abnormal [Fatal]

NARRATIVE: CASE EVENT DATE: 20161126
